FAERS Safety Report 16018450 (Version 1)
Quarter: 2019Q1

REPORT INFORMATION
  Report Type: Report from Study
  Country: None (occurrence: DE)
  Receive Date: 20190228
  Receipt Date: 20190228
  Transmission Date: 20190418
  Serious: Yes (Hospitalization)
  Sender: FDA-Public Use
  Company Number: DE-ABBVIE-19K-062-2676487-00

PATIENT
  Age: 49 Year
  Sex: Female
  Weight: 86 kg

DRUGS (1)
  1. HUMIRA [Suspect]
     Active Substance: ADALIMUMAB
     Indication: ANKYLOSING SPONDYLITIS
     Route: 058
     Dates: start: 20070716

REACTIONS (6)
  - Abdominal distension [Recovering/Resolving]
  - Intestinal ulcer [Recovering/Resolving]
  - Defaecation disorder [Recovering/Resolving]
  - Dyspepsia [Recovering/Resolving]
  - Burning sensation [Recovered/Resolved]
  - Pruritus generalised [Recovered/Resolved]

NARRATIVE: CASE EVENT DATE: 20171215
